FAERS Safety Report 5335309-0 (Version None)
Quarter: 2007Q2

REPORT INFORMATION
  Report Type: 
  Country: None (occurrence: None)
  Receive Date: 20070525
  Receipt Date: 20070515
  Transmission Date: 20071010
  Serious: Yes (Other)
  Sender: FDA-Public Use
  Company Number: JP-PFIZER INC-2007036802

PATIENT
  Age: 35 Year
  Sex: Male

DRUGS (5)
  1. ZITHROMAC [Suspect]
     Indication: TONSILLITIS
     Dosage: DAILY DOSE:500MG
     Route: 048
     Dates: start: 20070424, end: 20070426
  2. PL GRAN. [Concomitant]
     Route: 048
     Dates: start: 20070424, end: 20070426
  3. MUCOSTA [Concomitant]
     Route: 048
     Dates: start: 20070424, end: 20070426
  4. LOXONIN [Concomitant]
     Route: 048
     Dates: start: 20070424, end: 20070426
  5. COUGHCODE N [Concomitant]
     Route: 048
     Dates: start: 20070424, end: 20070426

REACTIONS (4)
  - HYPOAESTHESIA ORAL [None]
  - LIP SWELLING [None]
  - PALATAL OEDEMA [None]
  - VOMITING [None]
